FAERS Safety Report 17772429 (Version 3)
Quarter: 2020Q3

REPORT INFORMATION
  Report Type: Spontaneous
  Country: DE (occurrence: DE)
  Receive Date: 20200512
  Receipt Date: 20200720
  Transmission Date: 20201102
  Serious: Yes (Other)
  Sender: FDA-Public Use
  Company Number: DE-INCYTE CORPORATION-2020IN004255

PATIENT

DRUGS (2)
  1. JAKAVI [Suspect]
     Active Substance: RUXOLITINIB
     Indication: HYPERCOAGULATION
     Dosage: UNK
     Route: 065
     Dates: start: 201605
  2. JAKAVI [Suspect]
     Active Substance: RUXOLITINIB
     Indication: POLYCYTHAEMIA VERA

REACTIONS (5)
  - Impaired healing [Unknown]
  - Localised infection [Unknown]
  - Squamous cell carcinoma [Recovered/Resolved with Sequelae]
  - Rash [Unknown]
  - Second primary malignancy [Recovered/Resolved with Sequelae]

NARRATIVE: CASE EVENT DATE: 201811
